FAERS Safety Report 7956588-7 (Version None)
Quarter: 2011Q4

REPORT INFORMATION
  Report Type: 
  Country: None (occurrence: None)
  Receive Date: 20111201
  Receipt Date: 20111125
  Transmission Date: 20120403
  Serious: Yes (Hospitalization)
  Sender: FDA-Public Use
  Company Number: AUR-APL-2011-02958

PATIENT
  Age: 43 Year
  Sex: Female
  Weight: 67 kg

DRUGS (7)
  1. CANDESARTAN CILEXETIL [Concomitant]
  2. CITALOPRAM HYDROBROMIDE [Suspect]
     Indication: PRODUCT USED FOR UNKNOWN INDICATION
     Dosage: (10 MG),(20 MG)
     Dates: start: 20110204, end: 20110304
  3. CITALOPRAM HYDROBROMIDE [Suspect]
     Indication: DEPRESSION
     Dosage: (10 MG),(20 MG)
     Dates: start: 20110204, end: 20110304
  4. CITALOPRAM HYDROBROMIDE [Suspect]
     Indication: PRODUCT USED FOR UNKNOWN INDICATION
     Dosage: (10 MG),(20 MG)
     Dates: start: 20110404
  5. CITALOPRAM HYDROBROMIDE [Suspect]
     Indication: DEPRESSION
     Dosage: (10 MG),(20 MG)
     Dates: start: 20110404
  6. CITALOPRAM HYDROBROMIDE [Suspect]
     Indication: PRODUCT USED FOR UNKNOWN INDICATION
     Dosage: (10 MG),(20 MG)
     Dates: start: 20110407
  7. CITALOPRAM HYDROBROMIDE [Suspect]
     Indication: DEPRESSION
     Dosage: (10 MG),(20 MG)
     Dates: start: 20110407

REACTIONS (4)
  - AGITATION [None]
  - ACUTE PSYCHOSIS [None]
  - MALAISE [None]
  - TOXICITY TO VARIOUS AGENTS [None]
